FAERS Safety Report 6741870-1 (Version None)
Quarter: 2010Q2

REPORT INFORMATION
  Report Type: 
  Country: None (occurrence: None)
  Receive Date: 20100526
  Receipt Date: 20100517
  Transmission Date: 20101027
  Serious: Yes (Death, Hospitalization)
  Sender: FDA-Public Use
  Company Number: A0788055A

PATIENT
  Age: 67 Year
  Sex: Male
  Weight: 44.5 kg

DRUGS (1)
  1. AVANDIA [Suspect]
     Dosage: 4MG TWICE PER DAY
     Route: 048
     Dates: start: 20060301, end: 20070919

REACTIONS (5)
  - ARRHYTHMIA [None]
  - CARDIAC FAILURE [None]
  - DIABETIC COMA [None]
  - RESPIRATORY FAILURE [None]
  - SEPSIS [None]
